FAERS Safety Report 7502051-7 (Version None)
Quarter: 2011Q2

REPORT INFORMATION
  Report Type: 
  Country: None (occurrence: None)
  Receive Date: 20110525
  Receipt Date: 20110511
  Transmission Date: 20111010
  Serious: Yes (Other)
  Sender: FDA-Public Use
  Company Number: DE-RANBAXY-2011RR-44673

PATIENT
  Age: 60 Year
  Sex: Female

DRUGS (8)
  1. RISPERIDONE [Suspect]
     Dosage: 0.5 MG, BID
     Route: 048
     Dates: start: 20110504
  2. DOPPELHERZ AKTIV [Concomitant]
  3. MAGNESIUM [Concomitant]
     Dosage: 300 MG, UNK
  4. POTASSIUM CHLORIDE [Concomitant]
     Dosage: 300 MG, UNK
  5. ZINC [Concomitant]
     Dosage: 5 MG, UNK
  6. RISPERIDONE [Suspect]
     Dosage: 1 MG, BID
     Route: 048
     Dates: start: 20110428, end: 20110504
  7. RISPERIDONE [Suspect]
     Dosage: 0.5 MG, QD
     Route: 048
     Dates: end: 20110517
  8. ILJA ROGOFF GARLIC PEARLS [Concomitant]

REACTIONS (6)
  - SOMNOLENCE [None]
  - VISUAL IMPAIRMENT [None]
  - HYPOAESTHESIA [None]
  - MUSCLE SPASMS [None]
  - POLLAKIURIA [None]
  - HEART RATE INCREASED [None]
